FAERS Safety Report 6840399-X (Version None)
Quarter: 2010Q3

REPORT INFORMATION
  Report Type: 
  Country: None (occurrence: None)
  Receive Date: 20100714
  Receipt Date: 20100706
  Transmission Date: 20110219
  Serious: Yes (Other)
  Sender: FDA-Public Use
  Company Number: US-PFIZER INC-2010084124

PATIENT
  Sex: Male
  Weight: 138.3 kg

DRUGS (1)
  1. SUTENT [Suspect]
     Indication: BONE NEOPLASM MALIGNANT
     Dosage: 50 MG, 1X/DAY
     Route: 048
     Dates: start: 20090101

REACTIONS (3)
  - BODY HEIGHT DECREASED [None]
  - HYPERKERATOSIS [None]
  - SKIN ULCER [None]
